FAERS Safety Report 10055540 (Version 1)
Quarter: 2014Q2

REPORT INFORMATION
  Report Type: Not Available
  Country: FR (occurrence: FR)
  Receive Date: 20140403
  Receipt Date: 20140403
  Transmission Date: 20141212
  Serious: Yes (Disabling, Other)
  Sender: FDA-Public Use
  Company Number: FR-BEH-2014041419

PATIENT
  Age: 44 Year
  Sex: Female

DRUGS (20)
  1. HIZENTRA [Suspect]
     Route: 058
     Dates: start: 20130329
  2. HIZENTRA [Suspect]
     Route: 058
     Dates: start: 20130329
  3. HIZENTRA [Suspect]
     Route: 058
     Dates: start: 20130423
  4. HIZENTRA [Suspect]
     Route: 058
     Dates: start: 20130423
  5. HIZENTRA [Suspect]
     Route: 058
     Dates: start: 20130523
  6. HIZENTRA [Suspect]
     Route: 058
     Dates: start: 20130523
  7. HIZENTRA [Suspect]
     Route: 058
     Dates: start: 20130626
  8. HIZENTRA [Suspect]
     Route: 058
     Dates: start: 20130626
  9. HIZENTRA [Suspect]
     Route: 058
     Dates: start: 20130626
  10. HIZENTRA [Suspect]
     Route: 058
     Dates: start: 20130726
  11. HIZENTRA [Suspect]
     Route: 058
     Dates: start: 20130726
  12. HIZENTRA [Suspect]
     Route: 058
     Dates: start: 20130726
  13. HIZENTRA [Suspect]
     Route: 058
     Dates: start: 20130826
  14. HIZENTRA [Suspect]
     Route: 058
     Dates: start: 20130826
  15. HIZENTRA [Suspect]
     Route: 058
     Dates: start: 20130826
  16. HIZENTRA [Suspect]
     Route: 058
     Dates: start: 20131030
  17. HIZENTRA [Suspect]
     Route: 058
     Dates: start: 20131030
  18. HIZENTRA [Suspect]
     Route: 058
     Dates: start: 20131030
  19. HIZENTRA [Suspect]
     Route: 058
     Dates: start: 20121207
  20. HIZENTRA [Suspect]
     Route: 058
     Dates: start: 20130208

REACTIONS (9)
  - Injection site necrosis [Recovered/Resolved]
  - Dyspnoea [Recovered/Resolved]
  - Limb discomfort [Recovered/Resolved]
  - Burning sensation [Recovered/Resolved]
  - Activities of daily living impaired [Recovered/Resolved]
  - Asthenia [Recovered/Resolved]
  - Arthralgia [Recovered/Resolved]
  - Myalgia [Recovered/Resolved]
  - Headache [Recovered/Resolved]
